FAERS Safety Report 5513548-3 (Version None)
Quarter: 2007Q4

REPORT INFORMATION
  Report Type: 
  Country: None (occurrence: None)
  Receive Date: 20071108
  Receipt Date: 20071024
  Transmission Date: 20080405
  Serious: Yes (Hospitalization)
  Sender: FDA-Public Use
  Company Number: DSA_30114_2007

PATIENT
  Age: 41 Year
  Sex: Male

DRUGS (6)
  1. ENALAPRIL MALEATE [Suspect]
     Indication: HYPERTENSION
     Dosage: 20 MG QD ORAL
     Route: 048
     Dates: end: 20070401
  2. MYCOPHENOLATE MOFETIL [Suspect]
     Indication: RENAL TRANSPLANT
     Dosage: 1000 MG BID ORAL
     Route: 048
     Dates: end: 20070520
  3. PREDNISOLONE [Concomitant]
  4. AMLODIPINE BESYLATE [Concomitant]
  5. CYCLOSPORINE [Concomitant]
  6. PRAVASTATIN SODIUM [Concomitant]

REACTIONS (17)
  - AFFECTIVE DISORDER [None]
  - CEREBELLAR SYNDROME [None]
  - CONVULSION [None]
  - DISTURBANCE IN ATTENTION [None]
  - ENCEPHALOPATHY [None]
  - HALLUCINATION [None]
  - INDIFFERENCE [None]
  - LETHARGY [None]
  - LYME DISEASE [None]
  - MANIA [None]
  - MENINGITIS [None]
  - NIGHT BLINDNESS [None]
  - OPSOCLONUS MYOCLONUS [None]
  - PARAESTHESIA [None]
  - SPEECH DISORDER [None]
  - VISION BLURRED [None]
  - VOMITING [None]
